FAERS Safety Report 9408580 (Version 1)
Quarter: 2013Q3

REPORT INFORMATION
  Report Type: Spontaneous
  Country: US (occurrence: US)
  Receive Date: 20130718
  Receipt Date: 20130718
  Transmission Date: 20140515
  Serious: No
  Sender: FDA-Public Use
  Company Number: US-ASTELLAS-2013US005820

PATIENT
  Age: 45 Year
  Sex: Male
  Weight: 61 kg

DRUGS (1)
  1. VESICARE [Suspect]
     Indication: HYPERTONIC BLADDER
     Dosage: 10 MG, UID/QD
     Route: 048

REACTIONS (3)
  - Incorrect dose administered [Unknown]
  - Treatment noncompliance [Unknown]
  - Oedema peripheral [Unknown]
